FAERS Safety Report 15341247 (Version 2)
Quarter: 2018Q3

REPORT INFORMATION
  Report Type: Report from Study
  Country: PA (occurrence: PA)
  Receive Date: 20180831
  Receipt Date: 20180918
  Transmission Date: 20181010
  Serious: Yes (Other)
  Sender: FDA-Public Use
  Company Number: PHHY2018PA082738

PATIENT
  Age: 23 Year
  Sex: Male

DRUGS (1)
  1. SANDOSTATIN LAR DEPOT [Suspect]
     Active Substance: OCTREOTIDE ACETATE
     Indication: HYPOGLYCAEMIA
     Dosage: 20 MG, (2 EVERY 21 DAYS)
     Route: 065

REACTIONS (13)
  - Nervousness [Unknown]
  - Feeling abnormal [Unknown]
  - Product use in unapproved indication [Unknown]
  - Irritability [Unknown]
  - Product storage error [Unknown]
  - General physical health deterioration [Unknown]
  - Malaise [Unknown]
  - Seizure [Unknown]
  - Exercise tolerance decreased [Unknown]
  - Glycosylated haemoglobin decreased [Unknown]
  - Inappropriate schedule of drug administration [Unknown]
  - Blood glucose abnormal [Unknown]
  - Hypoglycaemia [Not Recovered/Not Resolved]
